FAERS Safety Report 9942386 (Version 1)
Quarter: 2014Q1

REPORT INFORMATION
  Report Type: Spontaneous
  Country: FR (occurrence: FR)
  Receive Date: 20140303
  Receipt Date: 20140303
  Transmission Date: 20141002
  Serious: Yes (Hospitalization)
  Sender: FDA-Public Use
  Company Number: FR-PFIZER INC-2014059371

PATIENT
  Age: 84 Year
  Sex: Male

DRUGS (12)
  1. ESTRACYT [Suspect]
     Dosage: 2 DF, 2X/DAY
     Route: 048
     Dates: start: 201303
  2. SIMVASTATIN [Concomitant]
     Dosage: 20 MG, DAILY
     Dates: end: 20140123
  3. GLUCOPHAGE [Concomitant]
     Dosage: 500 MG, 3X/DAY
     Route: 048
     Dates: end: 20140123
  4. GLICLAZIDE [Concomitant]
     Indication: HYPERGLYCAEMIA
     Dosage: UNK
     Dates: end: 20140123
  5. GLICLAZIDE [Concomitant]
     Dosage: UNK
     Dates: start: 20140126
  6. EUPANTOL [Concomitant]
     Dosage: UNK
  7. KARDEGIC [Concomitant]
  8. PERINDOPRIL ERBUMINE/INDAPAMIDE HEMIHYDRATE [Concomitant]
  9. STILNOX [Concomitant]
  10. FORLAX [Concomitant]
     Dosage: 4000 UNK, UNK
  11. SPASFON [Concomitant]
  12. SERETIDE [Concomitant]

REACTIONS (2)
  - Cholestatic liver injury [Unknown]
  - Hepatic steatosis [Unknown]
